FAERS Safety Report 5748144-6 (Version None)
Quarter: 2008Q2

REPORT INFORMATION
  Report Type: 
  Country: None (occurrence: None)
  Receive Date: 20080523
  Receipt Date: 20080519
  Transmission Date: 20081010
  Serious: Yes (Life-Threatening, Hospitalization)
  Sender: FDA-Public Use
  Company Number: GR-BOEHRINGER INGELHEIM GMBH, GERMANY-2008-DE-02940GD

PATIENT
  Age: 57 Year
  Sex: Male

DRUGS (6)
  1. DIPYRIDAMOLE [Suspect]
     Indication: TRANSIENT ISCHAEMIC ATTACK
  2. HEPARIN [Suspect]
     Indication: TRANSIENT ISCHAEMIC ATTACK
     Route: 042
  3. ASPIRIN [Suspect]
     Indication: TRANSIENT ISCHAEMIC ATTACK
  4. WARFARIN SODIUM [Suspect]
     Indication: ATRIAL FIBRILLATION
  5. METOPROLOL TARTRATE [Concomitant]
     Route: 048
  6. MANNITOL [Concomitant]
     Dosage: 1 G/KG

REACTIONS (9)
  - ABDOMINAL PAIN LOWER [None]
  - BACK PAIN [None]
  - FLUID OVERLOAD [None]
  - HAEMATOCRIT DECREASED [None]
  - HAEMOGLOBIN DECREASED [None]
  - MONOPARESIS [None]
  - NAUSEA [None]
  - NEUROPATHY PERIPHERAL [None]
  - RETROPERITONEAL HAEMATOMA [None]
